FAERS Safety Report 17718504 (Version 2)
Quarter: 2020Q3

REPORT INFORMATION
  Report Type: Other
  Country: GB (occurrence: GB)
  Receive Date: 20200428
  Receipt Date: 20200921
  Transmission Date: 20201102
  Serious: Yes (Disabling)
  Sender: FDA-Public Use
  Company Number: GB-MACLEODS PHARMACEUTICALS US LTD-MAC2020026303

PATIENT

DRUGS (2)
  1. LEVOFLOXACIN 500 MG [Suspect]
     Active Substance: LEVOFLOXACIN
     Indication: KLEBSIELLA INFECTION
     Dosage: 500 MILLIGRAM, 2 DAY
     Route: 048
     Dates: start: 20200313
  2. PREDNISOLONE. [Concomitant]
     Active Substance: PREDNISOLONE
     Indication: COUGH
     Route: 065

REACTIONS (6)
  - Tendon pain [Unknown]
  - Tendonitis [Not Recovered/Not Resolved]
  - Amnesia [Unknown]
  - Deafness [Not Recovered/Not Resolved]
  - Tremor [Not Recovered/Not Resolved]
  - Taste disorder [Not Recovered/Not Resolved]

NARRATIVE: CASE EVENT DATE: 202003
